FAERS Safety Report 7824874-7 (Version None)
Quarter: 2011Q4

REPORT INFORMATION
  Report Type: 
  Country: None (occurrence: None)
  Receive Date: 20111019
  Receipt Date: 20111017
  Transmission Date: 20120403
  Serious: Yes (Death)
  Sender: FDA-Public Use
  Company Number: PHHY2011NL91691

PATIENT
  Sex: Female

DRUGS (2)
  1. ZOLEDRONOC ACID [Suspect]
     Dosage: 5 MG ONCE PER 364 DAYS
     Route: 042
     Dates: start: 20091116
  2. ZOLEDRONOC ACID [Suspect]
     Dosage: 5 MG ONCE PER 364 DAYS
     Route: 042
     Dates: start: 20101101

REACTIONS (1)
  - DEATH [None]
